FAERS Safety Report 5468104-2 (Version None)
Quarter: 2007Q3

REPORT INFORMATION
  Report Type: 
  Country: None (occurrence: None)
  Receive Date: 20070921
  Receipt Date: 20070905
  Transmission Date: 20080115
  Serious: Yes (Death, Other)
  Sender: FDA-Public Use
  Company Number: 2007RR-09421

PATIENT
  Age: 53 Year
  Sex: Male

DRUGS (9)
  1. METRONIDAZOLE [Suspect]
     Indication: ANALGESIA
  2. AUGMENTIN [Suspect]
  3. LEVOFLOXACIN [Suspect]
  4. GENTAMICIN [Suspect]
  5. PARACETAMOL CAPSULES 500MG(ACETAMINOPHEN/PARACETAMOL [Suspect]
     Indication: ANALGESIA
  6. VANCOMYCIN [Suspect]
  7. DICLOFENAC SODIUM TABLETS 25MG (DICLOFENAC) UNKNOWN [Concomitant]
  8. METOCLOPRAMIDE TABLETS 10MG (METOCLOPRAMIDE) UNKNOWN [Concomitant]
  9. OMEPRAZOLE [Concomitant]

REACTIONS (5)
  - DISORIENTATION [None]
  - GENERAL PHYSICAL HEALTH DETERIORATION [None]
  - METABOLIC ACIDOSIS [None]
  - MYOCARDIAL INFARCTION [None]
  - URINE ABNORMALITY [None]
